FAERS Safety Report 7436098-6 (Version None)
Quarter: 2011Q2

REPORT INFORMATION
  Report Type: 
  Country: None (occurrence: None)
  Receive Date: 20110425
  Receipt Date: 20110419
  Transmission Date: 20111010
  Serious: Yes (Hospitalization)
  Sender: FDA-Public Use
  Company Number: BE-PFIZER INC-2011083114

PATIENT
  Age: 70 Year
  Sex: Female
  Weight: 52 kg

DRUGS (10)
  1. TACROLIMUS [Suspect]
     Indication: PROPHYLAXIS AGAINST TRANSPLANT REJECTION
     Dosage: 3 MG, 1X/DAY
     Route: 048
     Dates: start: 20070909
  2. CELLCEPT [Concomitant]
     Indication: IMMUNOSUPPRESSION
     Dosage: 500 MG, 2X/DAY
     Dates: start: 20101101
  3. OMEPRAZOLE [Concomitant]
     Indication: PROPHYLAXIS AGAINST GASTROINTESTINAL ULCER
     Dosage: 20 MG, 1X/DAY
     Dates: start: 20070901
  4. AMLODIPINE BESYLATE [Concomitant]
     Indication: HYPERTENSION
     Dosage: 5 MG, UNK
     Route: 048
     Dates: start: 20080801
  5. LASIX [Suspect]
     Indication: OEDEMA PERIPHERAL
     Dosage: 40 MG, 1X/DAY
     Route: 048
     Dates: start: 20100901, end: 20101215
  6. ALDACTONE [Suspect]
     Indication: OEDEMA PERIPHERAL
     Dosage: 100 MG, 1X/DAY
     Route: 048
     Dates: start: 20101101, end: 20101215
  7. LOORTAN [Suspect]
     Indication: HYPERTENSION
     Dosage: 50 MG, 1X/DAY
     Route: 048
     Dates: start: 20100401, end: 20101215
  8. ENTOCORT EC [Concomitant]
     Indication: AUTOIMMUNE HEPATITIS
     Dosage: 3 MG, 3X/DAY
     Route: 048
     Dates: start: 20101101
  9. RAPAMUNE [Concomitant]
     Indication: IMMUNOSUPPRESSION
     Dosage: 1 MG, ALTERNATE DAY
     Dates: start: 20090717
  10. BISOPROLOL [Concomitant]
     Indication: HYPERTENSION
     Dosage: 10 MG, 1X/DAY
     Route: 048
     Dates: start: 20060315

REACTIONS (1)
  - DEHYDRATION [None]
